FAERS Safety Report 17535045 (Version 5)
Quarter: 2020Q2

REPORT INFORMATION
  Report Type: Report from Study
  Country: NL (occurrence: NL)
  Receive Date: 20200312
  Receipt Date: 20200612
  Transmission Date: 20200713
  Serious: Yes (Hospitalization, Other)
  Sender: FDA-Public Use
  Company Number: NVSC2020NL006517

PATIENT
  Age: 4 Year
  Sex: Female

DRUGS (1)
  1. TRAMETINIB [Suspect]
     Active Substance: TRAMETINIB
     Indication: ASTROCYTOMA
     Dosage: 0.375 MG/KG
     Route: 048
     Dates: start: 20191212

REACTIONS (11)
  - Product administration error [Unknown]
  - Neoplasm progression [Recovering/Resolving]
  - Product use issue [Unknown]
  - Astrocytoma [Unknown]
  - Skin infection [Unknown]
  - Eyelash discolouration [Unknown]
  - Hypothyroidism [Unknown]
  - Somnolence [Recovered/Resolved]
  - Hair colour changes [Unknown]
  - Off label use [Unknown]
  - Transaminases increased [Unknown]

NARRATIVE: CASE EVENT DATE: 202002
